FAERS Safety Report 7942133-9 (Version None)
Quarter: 2011Q4

REPORT INFORMATION
  Report Type: 
  Country: None (occurrence: None)
  Receive Date: 20111123
  Receipt Date: 20111123
  Transmission Date: 20120403
  Serious: Yes (Other)
  Sender: FDA-Public Use
  Company Number: None

PATIENT
  Sex: Female
  Weight: 53.5244 kg

DRUGS (2)
  1. CARAFATE [Suspect]
     Indication: GASTROOESOPHAGEAL REFLUX DISEASE
     Dosage: 1 GM 4X DAILY ORAL
     Route: 048
     Dates: start: 20110909
  2. SUCRALFATE [Suspect]
     Indication: OROPHARYNGEAL PAIN
     Dates: start: 20110822

REACTIONS (7)
  - OBSTRUCTIVE AIRWAYS DISORDER [None]
  - GASTROOESOPHAGEAL REFLUX DISEASE [None]
  - FAECES HARD [None]
  - COLONIC OBSTRUCTION [None]
  - SINUSITIS [None]
  - PAIN [None]
  - INCREASED VISCOSITY OF NASAL SECRETION [None]
